FAERS Safety Report 8411745 (Version 7)
Quarter: 2017Q1

REPORT INFORMATION
  Report Type: Spontaneous
  Country: US (occurrence: US)
  Receive Date: 20120217
  Receipt Date: 20170112
  Transmission Date: 20170429
  Serious: Yes (Hospitalization, Disabling, Other)
  Sender: FDA-Public Use
  Company Number: US-009507513-1202USA02446

PATIENT
  Sex: Female
  Weight: 43.55 kg

DRUGS (3)
  1. FOSAMAX [Suspect]
     Active Substance: ALENDRONATE SODIUM
     Indication: OSTEOPENIA
     Dosage: 70 MG, QW
     Route: 048
     Dates: start: 2001, end: 200804
  2. MK-9278 [Concomitant]
     Active Substance: VITAMINS
     Dosage: UNK UNK, QD
     Route: 065
     Dates: start: 1984
  3. FOSAMAX [Suspect]
     Active Substance: ALENDRONATE SODIUM
     Dosage: 10 MG, DAILY
     Route: 048
     Dates: start: 1995, end: 2001

REACTIONS (43)
  - Cervical polypectomy [Unknown]
  - Drug hypersensitivity [Unknown]
  - Insomnia [Unknown]
  - Rhinitis allergic [Recovering/Resolving]
  - Rib fracture [Unknown]
  - Tendon disorder [Unknown]
  - Faecaloma [Unknown]
  - Rib fracture [Unknown]
  - Muscle spasms [Unknown]
  - Constipation [Unknown]
  - Dental implantation [Unknown]
  - Anxiety [Unknown]
  - Hallucination [Unknown]
  - Lymphadenopathy [Unknown]
  - Insomnia [Unknown]
  - Sedation [Unknown]
  - Bundle branch block right [Unknown]
  - Low turnover osteopathy [Unknown]
  - Upper respiratory tract infection [Unknown]
  - Bronchitis [Unknown]
  - Intervertebral disc protrusion [Unknown]
  - Gastrooesophageal reflux disease [Unknown]
  - Dermatitis allergic [Unknown]
  - Upper respiratory tract infection [Unknown]
  - Pharyngitis [Unknown]
  - Intervertebral disc degeneration [Unknown]
  - Dyspnoea [Recovering/Resolving]
  - Rib fracture [Unknown]
  - Tooth disorder [Unknown]
  - Depression [Not Recovered/Not Resolved]
  - Abdominal pain [Unknown]
  - Muscle strain [Unknown]
  - Carpal tunnel syndrome [Unknown]
  - Contusion [Unknown]
  - Fall [Unknown]
  - Drug hypersensitivity [Unknown]
  - Herpes simplex [Unknown]
  - Scapula fracture [Unknown]
  - Femur fracture [Not Recovered/Not Resolved]
  - Polyarthritis [Unknown]
  - Constipation [Unknown]
  - Bronchitis [Unknown]
  - Irritable bowel syndrome [Not Recovered/Not Resolved]

NARRATIVE: CASE EVENT DATE: 19981224
